FAERS Safety Report 17411123 (Version 1)
Quarter: 2020Q1

REPORT INFORMATION
  Report Type: Spontaneous
  Country: US (occurrence: US)
  Receive Date: 20200212
  Receipt Date: 20200212
  Transmission Date: 20200409
  Serious: No
  Sender: FDA-Public Use
  Company Number: US-NEXGEN PHARMA, INC.-2080252

PATIENT
  Age: 37 Year
  Sex: Male

DRUGS (1)
  1. CHENODIOL. [Suspect]
     Active Substance: CHENODIOL
     Indication: LIPIDOSIS
     Route: 048
     Dates: start: 20160605

REACTIONS (1)
  - Hepatic enzyme increased [Recovered/Resolved]
